FAERS Safety Report 9821582 (Version 4)
Quarter: 2014Q1

REPORT INFORMATION
  Report Type: Report from Study
  Country: GB (occurrence: GB)
  Receive Date: 20140116
  Receipt Date: 20140226
  Transmission Date: 20141002
  Serious: Yes (Other)
  Sender: FDA-Public Use
  Company Number: GB-VERTEX PHARMACEUTICALS INC-2014-000182

PATIENT
  Age: 39 Year
  Sex: Male

DRUGS (5)
  1. VX-950 (TELAPREVIR) [Suspect]
     Indication: HEPATITIS C
     Dosage: 750 MG, TID
     Route: 048
     Dates: start: 20131112
  2. RIBAVIRIN [Suspect]
     Indication: HEPATITIS C
     Dosage: DOSAGE FORM: TABLETS
     Route: 048
     Dates: start: 20131112
  3. PEG INTERFERON [Suspect]
     Indication: HEPATITIS C
     Dosage: DOSAGE FORM: INJECTION
     Route: 058
     Dates: start: 20131112
  4. TRUVADA [Concomitant]
     Indication: HIV INFECTION
  5. RALTEGRAVIR [Concomitant]
     Indication: HIV INFECTION

REACTIONS (7)
  - Malaise [Not Recovered/Not Resolved]
  - Vomiting [Not Recovered/Not Resolved]
  - Cough [Not Recovered/Not Resolved]
  - Pain of skin [Not Recovered/Not Resolved]
  - Pruritus [Not Recovered/Not Resolved]
  - Skin irritation [Not Recovered/Not Resolved]
  - Pruritus [Not Recovered/Not Resolved]
